FAERS Safety Report 4498042-3 (Version None)
Quarter: 2004Q4

REPORT INFORMATION
  Report Type: 
  Country: None (occurrence: None)
  Receive Date: 20041109
  Receipt Date: 20041109
  Transmission Date: 20050328
  Serious: Yes (Life-Threatening, Hospitalization)
  Sender: FDA-Public Use
  Company Number: None

PATIENT
  Age: 76 Year
  Sex: Male
  Weight: 85.7298 kg

DRUGS (8)
  1. WARFARIN  5MG  BRISTOL-MYERS SQUIBB [Suspect]
     Indication: HEART VALVE REPLACEMENT
     Dosage: 5MG/7.5MG   ONCE A DAY/M+W  ORAL
     Route: 048
     Dates: start: 19981026, end: 20041108
  2. SIMVASTATIN [Concomitant]
  3. DONEPEZIL HCL [Concomitant]
  4. DOCUSATE SODIUM [Concomitant]
  5. OMEPRAZOLE [Concomitant]
  6. HYDROCHLOROTHIAZIDE [Concomitant]
  7. COLCHICINE [Concomitant]
  8. DARVOCET-N 100 [Concomitant]

REACTIONS (6)
  - ASTHENIA [None]
  - BALANCE DISORDER [None]
  - DECREASED APPETITE [None]
  - DYSPNOEA EXERTIONAL [None]
  - GASTROINTESTINAL HAEMORRHAGE [None]
  - INTERNATIONAL NORMALISED RATIO INCREASED [None]
